FAERS Safety Report 7069440-9 (Version None)
Quarter: 2010Q4

REPORT INFORMATION
  Report Type: 
  Country: None (occurrence: None)
  Receive Date: 20101028
  Receipt Date: 20101019
  Transmission Date: 20110411
  Serious: No
  Sender: FDA-Public Use
  Company Number: US-BAYER-201037615NA

PATIENT
  Age: 57 Year
  Sex: Female

DRUGS (1)
  1. MAGNEVIST [Suspect]
     Indication: ANGIOGRAM
     Dosage: TOTAL DAILY DOSE: 32 ML
     Dates: start: 20101013, end: 20101013

REACTIONS (3)
  - DYSPNOEA [None]
  - EYE PRURITUS [None]
  - EYE ROLLING [None]
